FAERS Safety Report 16369328 (Version 2)
Quarter: 2019Q2

REPORT INFORMATION
  Report Type: Spontaneous
  Country: FR (occurrence: FR)
  Receive Date: 20190529
  Receipt Date: 20190606
  Transmission Date: 20190711
  Serious: Yes (Disabling, Congenital Anomaly, Other)
  Sender: FDA-Public Use
  Company Number: FR-LUNDBECK-DKLU2079313

PATIENT
  Age: 1 Day
  Sex: Male
  Weight: 3 kg

DRUGS (5)
  1. DEPAKINE CHRONO [Suspect]
     Active Substance: VALPROATE SODIUM
     Indication: EPILEPSY
     Route: 064
     Dates: start: 20001005, end: 20010621
  2. PHENOBARBITAL. [Suspect]
     Active Substance: PHENOBARBITAL
     Indication: PRODUCT USED FOR UNKNOWN INDICATION
     Route: 064
  3. URBANYL [Suspect]
     Active Substance: CLOBAZAM
     Indication: PRODUCT USED FOR UNKNOWN INDICATION
     Route: 064
     Dates: start: 20001221, end: 200104
  4. DEPAKINE CHRONO [Suspect]
     Active Substance: VALPROATE SODIUM
     Route: 064
  5. LEDERFOLINE [Concomitant]
     Active Substance: LEUCOVORIN CALCIUM
     Indication: PRODUCT USED FOR UNKNOWN INDICATION
     Route: 065

REACTIONS (18)
  - Foetal anticonvulsant syndrome [Unknown]
  - Dysmorphism [Unknown]
  - Intellectual disability [Unknown]
  - Knee deformity [Unknown]
  - Developmental delay [Unknown]
  - Cognitive disorder [Unknown]
  - Infection [Unknown]
  - Foetal exposure during pregnancy [Unknown]
  - Autism spectrum disorder [Unknown]
  - Talipes [Unknown]
  - Respiratory tract infection [Unknown]
  - Psychomotor skills impaired [Unknown]
  - Jaundice neonatal [Unknown]
  - Hypermetropia [Unknown]
  - Ear infection [Unknown]
  - Stridor [Unknown]
  - Communication disorder [Unknown]
  - Psychomotor retardation [Unknown]

NARRATIVE: CASE EVENT DATE: 20010622
